FAERS Safety Report 4586812-2 (Version None)
Quarter: 2005Q1

REPORT INFORMATION
  Report Type: 
  Country: None (occurrence: None)
  Receive Date: 20050218
  Receipt Date: 20050211
  Transmission Date: 20050727
  Serious: Yes (Hospitalization)
  Sender: FDA-Public Use
  Company Number: 200511300GDDC

PATIENT
  Age: 61 Year
  Sex: Female

DRUGS (15)
  1. INDAPAMIDE [Suspect]
     Dosage: DOSE: UNK
     Route: 048
  2. ENALAPRIL MALEATE [Suspect]
     Route: 048
     Dates: start: 20040916
  3. HYDRALAZINE HCL [Suspect]
     Route: 048
  4. SPIRONOLACTONE [Suspect]
     Route: 048
  5. LATANOPROST [Concomitant]
  6. FLUTAMIDE [Concomitant]
  7. ALBUTEROL [Concomitant]
  8. METHYLDOPA [Concomitant]
  9. SIMVASTATIN [Concomitant]
  10. METFORMIN HCL [Concomitant]
  11. GLIMEPIRIDE [Concomitant]
  12. ESTRADIOL [Concomitant]
  13. FISH OIL [Concomitant]
  14. ASCORBIC ACID [Concomitant]
  15. TOCOPHEROL CONCENTRATE CAP [Concomitant]

REACTIONS (2)
  - DIALYSIS [None]
  - RENAL FAILURE ACUTE [None]
